FAERS Safety Report 16034085 (Version 1)
Quarter: 2019Q1

REPORT INFORMATION
  Report Type: Spontaneous
  Country: US (occurrence: US)
  Receive Date: 20190305
  Receipt Date: 20190305
  Transmission Date: 20190418
  Serious: Yes (Death)
  Sender: FDA-Public Use
  Company Number: None

PATIENT
  Age: 59 Year
  Sex: Male

DRUGS (1)
  1. IOHEXOL 350 MG/ML SOLN [Suspect]
     Active Substance: IOHEXOL
     Indication: COMPUTERISED TOMOGRAM CORONARY ARTERY
     Dates: start: 20190201

REACTIONS (5)
  - Eye swelling [None]
  - Loss of consciousness [None]
  - Contrast media allergy [None]
  - Ocular hyperaemia [None]
  - Pulse absent [None]

NARRATIVE: CASE EVENT DATE: 20190201
